FAERS Safety Report 14379913 (Version 1)
Quarter: 2018Q1

REPORT INFORMATION
  Report Type: Spontaneous
  Country: FR (occurrence: FR)
  Receive Date: 20180112
  Receipt Date: 20180112
  Transmission Date: 20180509
  Serious: Yes (Hospitalization)
  Sender: FDA-Public Use
  Company Number: FR-CIPLA LTD.-2018FR00192

PATIENT

DRUGS (7)
  1. RISPERIDONE. [Suspect]
     Active Substance: RISPERIDONE
     Indication: SCHIZOPHRENIA
     Dosage: UNK
     Route: 048
  2. PRAZEPAM [Suspect]
     Active Substance: PRAZEPAM
     Indication: SCHIZOPHRENIA
     Dosage: 5 MG, PER DAY
     Route: 048
     Dates: end: 20171028
  3. CLOPIXOL ACTION PROLONGEE 200 MG/1 ML, SOLUTION INJECTABLE IM [Suspect]
     Active Substance: ZUCLOPENTHIXOL ACETATE
     Indication: SCHIZOPHRENIA
     Dosage: 1 DF, IN TOTAL
     Route: 030
     Dates: start: 20171024, end: 20171024
  4. NIQUITIN [Suspect]
     Active Substance: NICOTINE
     Indication: EX-TOBACCO USER
     Dosage: 1 DF, PER DAY
     Route: 062
     Dates: start: 20171015
  5. RIFATER [Suspect]
     Active Substance: ISONIAZID\PYRAZINAMIDE\RIFAMPIN
     Indication: BONE TUBERCULOSIS
     Dosage: 6 DF, PER DAY
     Route: 048
     Dates: start: 20171021
  6. DEPAKOTE [Suspect]
     Active Substance: DIVALPROEX SODIUM
     Indication: SCHIZOPHRENIA
     Dosage: 2 DF, PER DAY
     Route: 048
     Dates: end: 20171029
  7. DEXAMBUTOL [Suspect]
     Active Substance: ETHAMBUTOL HYDROCHLORIDE
     Indication: BONE TUBERCULOSIS
     Dosage: 1500 MG, PER DAY
     Route: 048
     Dates: start: 20171021

REACTIONS (4)
  - Bladder dilatation [Recovered/Resolved]
  - Confusional state [Recovered/Resolved]
  - Psychomotor skills impaired [Recovered/Resolved]
  - Quadriparesis [Recovered/Resolved]

NARRATIVE: CASE EVENT DATE: 20171025
